FAERS Safety Report 6214239-6 (Version None)
Quarter: 2009Q2

REPORT INFORMATION
  Report Type: 
  Country: None (occurrence: None)
  Receive Date: 20090604
  Receipt Date: 20090527
  Transmission Date: 20091009
  Serious: Yes (Other)
  Sender: FDA-Public Use
  Company Number: PHEH2007US01705

PATIENT
  Sex: Male

DRUGS (13)
  1. ZOMETA [Suspect]
     Indication: OSTEOPOROSIS
     Dosage: 4 MG, QMO
     Route: 042
     Dates: start: 20030909, end: 20060911
  2. DILACOR XR [Concomitant]
     Dosage: 180 MG, QD
  3. KEPPRA [Concomitant]
  4. LOVASTIN [Concomitant]
     Dosage: 40 MG, UNK
  5. TYLENOL W/ CODEINE [Concomitant]
  6. ZANTAC [Concomitant]
     Dosage: 150 MG, QD
  7. ZOLOFT [Concomitant]
     Dosage: UNK
     Dates: start: 20060613
  8. SERTRALINE HCL [Concomitant]
     Dosage: UNK
     Dates: start: 20060910
  9. IMMUNOGLOBULINS [Concomitant]
  10. CENTRUM [Concomitant]
  11. ASPIRIN [Concomitant]
  12. ASCORBIC ACID [Concomitant]
     Dosage: 500 MG, QD
  13. IBUPROFEN [Concomitant]
     Dosage: UNK MG, UNK

REACTIONS (14)
  - ANXIETY [None]
  - BENIGN BONE NEOPLASM [None]
  - BONE DISORDER [None]
  - DECREASED INTEREST [None]
  - DEFORMITY [None]
  - EMOTIONAL DISTRESS [None]
  - GENERAL PHYSICAL HEALTH DETERIORATION [None]
  - HYPOPHAGIA [None]
  - MUCOSAL INFLAMMATION [None]
  - ORAL TORUS [None]
  - OSTEONECROSIS [None]
  - PAIN [None]
  - SALIVARY GLAND ADENOMA [None]
  - TOOTH ABSCESS [None]
